FAERS Safety Report 12913196 (Version 1)
Quarter: 2016Q4

REPORT INFORMATION
  Report Type: Spontaneous
  Country: US (occurrence: US)
  Receive Date: 20161104
  Receipt Date: 20161104
  Transmission Date: 20170207
  Serious: No
  Sender: FDA-Public Use
  Company Number: US-ANACOR-2016ANA00273

PATIENT
  Age: 61 Year
  Sex: Female
  Weight: 54.42 kg

DRUGS (6)
  1. GLUCOSAMINE CHRONDROITIN [Concomitant]
  2. PRAVASTATIN. [Concomitant]
     Active Substance: PRAVASTATIN
     Dosage: 10 UNK, 1X/DAY
  3. KERYDIN [Suspect]
     Active Substance: TAVABOROLE
     Dosage: UNK, 1X/DAY
     Route: 061
  4. REFRESH TEARS [Concomitant]
     Active Substance: CARBOXYMETHYLCELLULOSE SODIUM
     Route: 047
  5. LOSARTAN. [Concomitant]
     Active Substance: LOSARTAN
     Dosage: 50 UNK, 1X/DAY
  6. KERYDIN [Suspect]
     Active Substance: TAVABOROLE
     Dosage: UNK, ONCE
     Route: 047
     Dates: start: 20160922, end: 20160922

REACTIONS (2)
  - Eye irritation [Recovered/Resolved]
  - Accidental exposure to product [Recovered/Resolved]

NARRATIVE: CASE EVENT DATE: 20160922
